FAERS Safety Report 11692549 (Version 1)
Quarter: 2015Q4

REPORT INFORMATION
  Report Type: Spontaneous
  Country: US (occurrence: US)
  Receive Date: 20151103
  Receipt Date: 20151103
  Transmission Date: 20160304
  Serious: No
  Sender: FDA-Public Use
  Company Number: US-PFIZER INC-2015368814

PATIENT
  Age: 62 Year
  Sex: Female

DRUGS (2)
  1. EFFEXOR [Suspect]
     Active Substance: VENLAFAXINE HYDROCHLORIDE
     Dosage: 75 MG, UNK
     Dates: end: 2015
  2. EFFEXOR [Suspect]
     Active Substance: VENLAFAXINE HYDROCHLORIDE
     Dosage: 150 MG, UNK
     Dates: start: 2015

REACTIONS (10)
  - Confusional state [Unknown]
  - Malaise [Unknown]
  - Headache [Unknown]
  - Diarrhoea [Unknown]
  - Fatigue [Unknown]
  - Visual impairment [Unknown]
  - Insomnia [Unknown]
  - Swelling [Unknown]
  - Psychomotor hyperactivity [Unknown]
  - Nervousness [Unknown]

NARRATIVE: CASE EVENT DATE: 2015
